FAERS Safety Report 16664423 (Version 2)
Quarter: 2019Q3

REPORT INFORMATION
  Report Type: Spontaneous
  Country: CH (occurrence: CH)
  Receive Date: 20190802
  Receipt Date: 20190827
  Transmission Date: 20191004
  Serious: Yes (Hospitalization, Other)
  Sender: FDA-Public Use
  Company Number: CH-TAKEDA-2019TUS041147

PATIENT
  Sex: Male

DRUGS (2)
  1. ICLUSIG [Suspect]
     Active Substance: PONATINIB
     Indication: ACUTE MYELOID LEUKAEMIA
     Dosage: 45 MILLIGRAM, QD
     Route: 048
     Dates: start: 20190607, end: 20190712
  2. ICLUSIG [Suspect]
     Active Substance: PONATINIB
     Dosage: 15 MILLIGRAM, QD
     Route: 048
     Dates: start: 20190728

REACTIONS (10)
  - Gastrointestinal infection [Unknown]
  - Liver function test increased [Recovering/Resolving]
  - Pyrexia [Recovered/Resolved]
  - Bacterial infection [Unknown]
  - Wrong technique in product usage process [Unknown]
  - Product administered to patient of inappropriate age [Unknown]
  - Drug interaction [Unknown]
  - Off label use [Unknown]
  - Cachexia [Unknown]
  - Decreased appetite [Recovering/Resolving]

NARRATIVE: CASE EVENT DATE: 20190607
